FAERS Safety Report 18744729 (Version 1)
Quarter: 2021Q1

REPORT INFORMATION
  Report Type: Spontaneous
  Country: GB (occurrence: GB)
  Receive Date: 20210115
  Receipt Date: 20210115
  Transmission Date: 20210419
  Serious: Yes (Life-Threatening, Other)
  Sender: FDA-Public Use
  Company Number: GB-AMGEN-GBRSP2021004435

PATIENT
  Age: 24 Year
  Sex: Male

DRUGS (4)
  1. PREDNISOLONE. [Concomitant]
     Active Substance: PREDNISOLONE
     Indication: PRODUCT USED FOR UNKNOWN INDICATION
  2. RIFINAH [Concomitant]
     Active Substance: ISONIAZID\RIFAMPIN
     Indication: PRODUCT USED FOR UNKNOWN INDICATION
  3. PYRIDOXINE [Concomitant]
     Active Substance: PYRIDOXINE
     Indication: PRODUCT USED FOR UNKNOWN INDICATION
  4. AMGEVITA [Suspect]
     Active Substance: ADALIMUMAB
     Indication: CROHN^S DISEASE
     Dosage: 40 MILLIGRAM, Q2WK
     Route: 058
     Dates: start: 20200417, end: 20201216

REACTIONS (1)
  - Nodular melanoma [Unknown]

NARRATIVE: CASE EVENT DATE: 20200903
